FAERS Safety Report 10715091 (Version 1)
Quarter: 2015Q1

REPORT INFORMATION
  Report Type: Spontaneous
  Country: US (occurrence: US)
  Receive Date: 20150115
  Receipt Date: 20150115
  Transmission Date: 20150721
  Serious: Yes (Death, Other)
  Sender: FDA-Public Use
  Company Number: US-GLAXOSMITHKLINE-US2015GSK003131

PATIENT
  Age: 69 Year
  Sex: Male

DRUGS (9)
  1. CARDIAC GLYCOSIDE [Suspect]
     Active Substance: UNSPECIFIED INGREDIENT
     Route: 048
  2. OXYBUTYNIN [Suspect]
     Active Substance: OXYBUTYNIN
  3. TRAZODONE [Suspect]
     Active Substance: TRAZODONE HYDROCHLORIDE
     Route: 048
  4. LAMOTRIGINE. [Suspect]
     Active Substance: LAMOTRIGINE
     Route: 048
  5. ESCITALOPRAM [Suspect]
     Active Substance: ESCITALOPRAM OXALATE
     Route: 048
  6. SALICYLATE [Suspect]
     Active Substance: SALICYLIC ACID
     Route: 048
  7. FINASTERIDE. [Suspect]
     Active Substance: FINASTERIDE
     Route: 048
  8. QUETIAPINE [Suspect]
     Active Substance: QUETIAPINE
     Route: 048
  9. CLONAZEPAM. [Suspect]
     Active Substance: CLONAZEPAM
     Route: 048

REACTIONS (1)
  - Completed suicide [Fatal]
